FAERS Safety Report 24909073 (Version 1)
Quarter: 2025Q1

REPORT INFORMATION
  Report Type: Report from Study
  Country: US (occurrence: US)
  Receive Date: 20250131
  Receipt Date: 20250131
  Transmission Date: 20250408
  Serious: Yes (Other)
  Sender: ACADIA PHARMACEUTICALS
  Company Number: US-ACADIA PHARMACEUTICALS INC.-ACA-2025-PIM-000770

PATIENT
  Age: 76 Year
  Sex: Male

DRUGS (11)
  1. NUPLAZID [Suspect]
     Active Substance: PIMAVANSERIN TARTRATE
     Indication: Parkinson^s disease
     Dosage: 34 MILLIGRAM, QD
     Route: 048
     Dates: start: 20241206
  2. CREON [Concomitant]
     Active Substance: PANCRELIPASE AMYLASE\PANCRELIPASE LIPASE\PANCRELIPASE PROTEASE
  3. ASPIRIN [Concomitant]
     Active Substance: ASPIRIN
  4. MIDODRINE [Concomitant]
     Active Substance: MIDODRINE
  5. MYRBETRIQ [Concomitant]
     Active Substance: MIRABEGRON
  6. MINERALS\VITAMINS [Concomitant]
     Active Substance: MINERALS\VITAMINS
  7. DOCUSATE [Concomitant]
     Active Substance: DOCUSATE
  8. VITAMIN D NOS [Concomitant]
     Active Substance: CHOLECALCIFEROL\ERGOCALCIFEROL
  9. NOURIANZ [Concomitant]
     Active Substance: ISTRADEFYLLINE
  10. RYTARY [Concomitant]
     Active Substance: CARBIDOPA\LEVODOPA
  11. ALBUTEROL [Concomitant]
     Active Substance: ALBUTEROL

REACTIONS (4)
  - Hallucination [Unknown]
  - Confusional state [Unknown]
  - Aggression [Unknown]
  - Product storage error [Unknown]

NARRATIVE: CASE EVENT DATE: 20250120
